FAERS Safety Report 8361341-9 (Version None)
Quarter: 2012Q2

REPORT INFORMATION
  Report Type: 
  Country: None (occurrence: None)
  Receive Date: 20120515
  Receipt Date: 20120511
  Transmission Date: 20120825
  Serious: Yes (Death, Hospitalization)
  Sender: FDA-Public Use
  Company Number: PHHY2012BE040470

PATIENT
  Age: 24 Year
  Sex: Male

DRUGS (4)
  1. DOMPERIDONE [Suspect]
     Dosage: 5 DF, ONCE/SINGLE
  2. MIDAZOLAM [Suspect]
     Dosage: 20 DF, ONCE/SINGLE
  3. CHLOROQUINE PHOSPHATE [Suspect]
     Dosage: 58 DF, ONCE/SINGLE
  4. ONDANSETRON [Suspect]
     Dosage: 10 DF, ONCE/SINGLE

REACTIONS (10)
  - PULSELESS ELECTRICAL ACTIVITY [None]
  - VENTRICULAR FIBRILLATION [None]
  - INTENTIONAL OVERDOSE [None]
  - BRAIN DEATH [None]
  - TOXICITY TO VARIOUS AGENTS [None]
  - LOSS OF CONSCIOUSNESS [None]
  - NODAL RHYTHM [None]
  - VENTRICULAR TACHYCARDIA [None]
  - MULTIPLE DRUG OVERDOSE INTENTIONAL [None]
  - BLOOD PRESSURE DECREASED [None]
